FAERS Safety Report 5709245-1 (Version None)
Quarter: 2008Q2

REPORT INFORMATION
  Report Type: 
  Country: None (occurrence: None)
  Receive Date: 20080418
  Receipt Date: 20080411
  Transmission Date: 20081010
  Serious: Yes (Other)
  Sender: FDA-Public Use
  Company Number: US-ASTRAZENECA-2008UW02512

PATIENT
  Age: 61 Year
  Sex: Female

DRUGS (10)
  1. ARIMIDEX [Suspect]
     Indication: BREAST CANCER
     Route: 048
     Dates: start: 20070601, end: 20070801
  2. ARIMIDEX [Suspect]
     Indication: BREAST LUMP REMOVAL
     Route: 048
     Dates: start: 20070601, end: 20070801
  3. ARIMIDEX [Suspect]
     Route: 048
     Dates: start: 20071001
  4. ARIMIDEX [Suspect]
     Route: 048
     Dates: start: 20071001
  5. ATENOLOL [Concomitant]
  6. FUROSEMIDE [Concomitant]
  7. POTASSIUM CHLORIDE [Concomitant]
  8. NAPROXEN [Concomitant]
  9. CAPOTEN [Concomitant]
  10. VICODIN [Concomitant]

REACTIONS (4)
  - ARTHRALGIA [None]
  - HOT FLUSH [None]
  - MUSCULOSKELETAL STIFFNESS [None]
  - TRIGGER FINGER [None]
